FAERS Safety Report 7298342-8 (Version None)
Quarter: 2011Q1

REPORT INFORMATION
  Report Type: 
  Country: None (occurrence: None)
  Receive Date: 20110214
  Receipt Date: 20110214
  Transmission Date: 20110831
  Serious: No
  Sender: FDA-Public Use
  Company Number: None

PATIENT
  Age: 58 Year
  Sex: Female
  Weight: 72.5755 kg

DRUGS (2)
  1. VALACYCLOVIR [Suspect]
     Indication: HERPES VIRUS INFECTION
     Dosage: 500MGS 1X PO
     Route: 048
     Dates: start: 20110210, end: 20110211
  2. VALACYCLOVIR [Suspect]
     Indication: HERPES VIRUS INFECTION
     Dosage: 500MGS 1X PO
     Route: 048
     Dates: start: 20110131, end: 20110207

REACTIONS (2)
  - SKIN DISCOLOURATION [None]
  - PRODUCT SUBSTITUTION ISSUE [None]
